FAERS Safety Report 7419801-0 (Version None)
Quarter: 2011Q2

REPORT INFORMATION
  Report Type: 
  Country: None (occurrence: None)
  Receive Date: 20110418
  Receipt Date: 20110406
  Transmission Date: 20111010
  Serious: Yes (Other)
  Sender: FDA-Public Use
  Company Number: BR-JNJFOC-20110403359

PATIENT
  Sex: Female

DRUGS (1)
  1. CAELYX [Suspect]
     Indication: OVARIAN EPITHELIAL CANCER
     Route: 042

REACTIONS (2)
  - ERYTHEMA [None]
  - SKIN EXFOLIATION [None]
